FAERS Safety Report 22192759 (Version 1)
Quarter: 2023Q2

REPORT INFORMATION
  Report Type: Spontaneous
  Country: US (occurrence: None)
  Receive Date: 20230410
  Receipt Date: 20230410
  Transmission Date: 20230721
  Serious: Yes (Hospitalization)
  Sender: FDA-Public Use
  Company Number: None

PATIENT
  Sex: Female

DRUGS (4)
  1. CIMZIA [Suspect]
     Active Substance: CERTOLIZUMAB PEGOL
     Indication: Psoriasis
     Dosage: DOSE: 2 X 200 MG/ML
     Route: 058
     Dates: start: 20201216
  2. HYDROCODONE [Concomitant]
  3. PENICILLINS [Concomitant]
  4. SALICYLATES [Concomitant]

REACTIONS (9)
  - Psoriasis [None]
  - Condition aggravated [None]
  - Loss of personal independence in daily activities [None]
  - Arthralgia [None]
  - Nausea [None]
  - Vomiting [None]
  - Upper respiratory tract infection [None]
  - Nasal congestion [None]
  - Therapy interrupted [None]
